FAERS Safety Report 5197869-2 (Version None)
Quarter: 2006Q4

REPORT INFORMATION
  Report Type: 
  Country: None (occurrence: None)
  Receive Date: 20061228
  Receipt Date: 20061221
  Transmission Date: 20070319
  Serious: Yes (Hospitalization)
  Sender: FDA-Public Use
  Company Number: E2020-00745-SPO-US

PATIENT
  Age: 82 Year
  Sex: Female
  Weight: 41 kg

DRUGS (7)
  1. ARICEPT [Suspect]
     Indication: DEMENTIA ALZHEIMER'S TYPE
     Dosage: SEE IMAGE, ORAL
     Route: 048
     Dates: end: 20060901
  2. ARICEPT [Suspect]
     Indication: DEMENTIA ALZHEIMER'S TYPE
     Dosage: SEE IMAGE, ORAL
     Route: 048
     Dates: start: 20060901, end: 20061101
  3. ARICEPT [Suspect]
     Indication: DEMENTIA ALZHEIMER'S TYPE
     Dosage: SEE IMAGE, ORAL
     Route: 048
     Dates: start: 20061101, end: 20061201
  4. NAMENDA [Suspect]
     Dosage: 10 MG, ORAL
     Route: 048
  5. RISPERDAL [Suspect]
  6. EFFEXOR [Suspect]
     Dosage: ORAL
     Route: 048
  7. REMERON [Suspect]

REACTIONS (5)
  - AGGRESSION [None]
  - AGITATION [None]
  - ANOREXIA [None]
  - DISEASE PROGRESSION [None]
  - FAILURE TO THRIVE [None]
